FAERS Safety Report 23896348 (Version 1)
Quarter: 2024Q2

REPORT INFORMATION
  Report Type: Spontaneous
  Country: AT (occurrence: AT)
  Receive Date: 20240524
  Receipt Date: 20240524
  Transmission Date: 20240715
  Serious: Yes (Other)
  Sender: FDA-Public Use
  Company Number: AT-MYLANLABS-2024M1046645

PATIENT
  Age: 43 Year
  Sex: Male

DRUGS (11)
  1. MYCOPHENOLATE MOFETIL [Suspect]
     Active Substance: MYCOPHENOLATE MOFETIL
     Indication: Mucous membrane pemphigoid
     Dosage: 3 GRAM, QD, THERAPY COMPLETED
     Route: 065
  2. METHOTREXATE [Suspect]
     Active Substance: METHOTREXATE
     Indication: Mucous membrane pemphigoid
     Dosage: UNK UNK, QW (30 MG/L)
     Route: 065
  3. METHOTREXATE [Suspect]
     Active Substance: METHOTREXATE
     Dosage: 30 MILLIGRAM, QW
     Route: 065
  4. METHOTREXATE [Suspect]
     Active Substance: METHOTREXATE
     Dosage: 25 MILLIGRAM, QW
     Route: 065
  5. METHOTREXATE [Suspect]
     Active Substance: METHOTREXATE
     Dosage: 25 MILLIGRAM, QW
     Route: 065
     Dates: start: 2017
  6. CYCLOPHOSPHAMIDE [Suspect]
     Active Substance: CYCLOPHOSPHAMIDE
     Indication: Mucous membrane pemphigoid
     Dosage: 1 GRAM, MONTHLY,THERAPY COMPLETED
     Route: 065
  7. RITUXIMAB [Suspect]
     Active Substance: RITUXIMAB
     Indication: Mucous membrane pemphigoid
     Dosage: 1 GRAM, THERAPY COMPLETED
     Route: 065
  8. HUMAN IMMUNOGLOBULIN G [Suspect]
     Active Substance: HUMAN IMMUNOGLOBULIN G
     Indication: Mucous membrane pemphigoid
     Dosage: UNK
     Route: 042
  9. BARICITINIB [Concomitant]
     Active Substance: BARICITINIB
     Indication: Mucous membrane pemphigoid
     Dosage: 4 MILLIGRAM, QD
     Route: 065
     Dates: start: 2017
  10. PREDNISOLONE [Concomitant]
     Active Substance: PREDNISOLONE
     Indication: Mucous membrane pemphigoid
     Dosage: UNK UNK, QD
     Route: 065
  11. PREDNISOLONE [Concomitant]
     Active Substance: PREDNISOLONE
     Dosage: 6 MILLIGRAM, QD
     Route: 065
     Dates: start: 2017

REACTIONS (2)
  - Drug ineffective for unapproved indication [Unknown]
  - Off label use [Unknown]
